FAERS Safety Report 7891781-3 (Version None)
Quarter: 2011Q4

REPORT INFORMATION
  Report Type: 
  Country: None (occurrence: None)
  Receive Date: 20111103
  Receipt Date: 20110810
  Transmission Date: 20120403
  Serious: No
  Sender: FDA-Public Use
  Company Number: US-AMGEN-USASP2011040567

PATIENT
  Sex: Male

DRUGS (1)
  1. ENBREL [Suspect]
     Indication: RHEUMATOID ARTHRITIS
     Dosage: 50 MG, QWK
     Dates: start: 20110720

REACTIONS (5)
  - PAIN IN EXTREMITY [None]
  - OEDEMA PERIPHERAL [None]
  - INSOMNIA [None]
  - ARTHRALGIA [None]
  - INJECTION SITE PAIN [None]
